FAERS Safety Report 6901381-7 (Version None)
Quarter: 2010Q3

REPORT INFORMATION
  Report Type: 
  Country: None (occurrence: None)
  Receive Date: 20100708
  Receipt Date: 20100216
  Transmission Date: 20110219
  Serious: Yes (Other)
  Sender: FDA-Public Use
  Company Number: 2010020510

PATIENT
  Age: 44 Year
  Sex: Female
  Weight: 79.8 kg

DRUGS (6)
  1. CHANTIX [Suspect]
     Indication: SMOKING CESSATION THERAPY
     Dosage: ORAL
     Route: 048
     Dates: end: 20100117
  2. HUMIRA [Suspect]
     Indication: PSORIATIC ARTHROPATHY
     Dosage: 40 MG, ONCE IN TWO WEEKS
     Dates: start: 20091201
  3. SERTRALINE HYDROCHLORIDE [Concomitant]
  4. AMITRIPTYLINE HYDROCHLORIDE [Concomitant]
  5. OMEPRAZOLE [Concomitant]
  6. TIZANIDINE HCL [Concomitant]

REACTIONS (9)
  - HEADACHE [None]
  - INJECTION SITE PAIN [None]
  - NAUSEA [None]
  - PAIN IN EXTREMITY [None]
  - RASH MACULAR [None]
  - SWELLING [None]
  - SWELLING FACE [None]
  - WEIGHT INCREASED [None]
  - WRONG TECHNIQUE IN DRUG USAGE PROCESS [None]
